FAERS Safety Report 24092264 (Version 1)
Quarter: 2024Q3

REPORT INFORMATION
  Report Type: Spontaneous
  Country: US (occurrence: US)
  Receive Date: 20240715
  Receipt Date: 20240715
  Transmission Date: 20241016
  Serious: Yes (Other)
  Sender: BRISTOL MYERS SQUIBB
  Company Number: US-BRISTOL-MYERS SQUIBB COMPANY-2024-106172

PATIENT
  Age: 77 Year
  Sex: Female

DRUGS (1)
  1. ONUREG [Suspect]
     Active Substance: AZACITIDINE
     Indication: Product used for unknown indication
     Dosage: FREQ : ONE TABLET BY MOUTH ONCE DAILY ON DAYS 1-14 OF 28 DAY CYCLE
     Route: 048

REACTIONS (7)
  - Alopecia [Unknown]
  - Nausea [Recovering/Resolving]
  - Vomiting [Unknown]
  - Thrombosis [Unknown]
  - Neutrophil count decreased [Unknown]
  - White blood cell count decreased [Unknown]
  - Platelet count decreased [Unknown]
